FAERS Safety Report 6735058-8 (Version None)
Quarter: 2010Q2

REPORT INFORMATION
  Report Type: 
  Country: None (occurrence: None)
  Receive Date: 20100521
  Receipt Date: 20100510
  Transmission Date: 20101027
  Serious: Yes (Other)
  Sender: FDA-Public Use
  Company Number: GB-PFIZER INC-2010046275

PATIENT
  Age: 72 Year
  Sex: Female
  Weight: 96.4 kg

DRUGS (11)
  1. ATORVASTATIN CALCIUM [Suspect]
     Dosage: UNK
     Dates: end: 20040201
  2. SIMVASTATIN [Suspect]
     Dosage: UNK
     Route: 048
  3. ACTOS [Suspect]
     Indication: TYPE 2 DIABETES MELLITUS
     Dosage: 30 MG, 1X/DAY
     Dates: start: 20070201, end: 20070501
  4. ROSIGLITAZONE [Suspect]
     Indication: TYPE 2 DIABETES MELLITUS
     Dosage: 4 MG, 1X/DAY
     Dates: start: 20050301, end: 20050601
  5. ROSIGLITAZONE [Suspect]
     Dosage: 8 MG, 1X/DAY
     Dates: start: 20050601, end: 20060901
  6. SUPRALIP [Suspect]
     Dosage: 160 MG, 1X/DAY
     Dates: start: 20030501, end: 20060901
  7. SUPRALIP [Suspect]
     Dosage: UNK
     Dates: start: 20060901
  8. METFORMIN [Concomitant]
     Dosage: 1.5 G, DAILY
  9. ROSUVASTATIN [Concomitant]
     Dosage: 10 MG, UNK
     Dates: start: 20040201, end: 20050601
  10. ROSUVASTATIN [Concomitant]
     Dosage: 20 MG, UNK
     Dates: start: 20050601, end: 20060801
  11. ROSUVASTATIN [Concomitant]
     Dosage: 10 MG, UNK
     Dates: start: 20060801

REACTIONS (2)
  - HIGH DENSITY LIPOPROTEIN DECREASED [None]
  - MYALGIA [None]
